FAERS Safety Report 4264551-5 (Version None)
Quarter: 2004Q1

REPORT INFORMATION
  Report Type: 
  Country: None (occurrence: None)
  Receive Date: 20040106
  Receipt Date: 20030407
  Transmission Date: 20041129
  Serious: Yes (Hospitalization, Disabling, Other)
  Sender: FDA-Public Use
  Company Number: WAES 0304USA00739

PATIENT
  Age: 62 Year
  Sex: Female
  Weight: 62 kg

DRUGS (15)
  1. AMITRIPTYLINE HYDROCHLORIDE [Concomitant]
     Indication: GENERALISED ANXIETY DISORDER
     Dates: start: 19990101, end: 20010101
  2. ROCALTROL [Concomitant]
     Route: 048
  3. OS-CAL + D [Concomitant]
  4. VALIUM [Concomitant]
  5. SYNTHROID [Concomitant]
  6. SYNTHROID [Concomitant]
     Route: 048
     Dates: start: 20010401
  7. MAGNESIUM SULFATE [Concomitant]
  8. REGLAN [Concomitant]
  9. REGLAN [Concomitant]
  10. PRILOSEC [Concomitant]
  11. DITROPAN XL [Concomitant]
  12. POTASSIUM CHLORIDE [Concomitant]
  13. VIOXX [Suspect]
     Route: 048
     Dates: start: 20000101, end: 20010501
  14. VIOXX [Suspect]
     Route: 048
     Dates: start: 20000101, end: 20010501
  15. AMBIEN [Concomitant]

REACTIONS (63)
  - AMNESIA [None]
  - ANAEMIA HAEMOLYTIC AUTOIMMUNE [None]
  - ANXIETY [None]
  - ARTHRALGIA [None]
  - ARTHRITIS INFECTIVE [None]
  - BARRETT'S OESOPHAGUS [None]
  - BLINDNESS UNILATERAL [None]
  - BLOOD CHOLESTEROL INCREASED [None]
  - BLOOD CREATINE PHOSPHOKINASE INCREASED [None]
  - BLOOD IRON DECREASED [None]
  - C-REACTIVE PROTEIN INCREASED [None]
  - CALCIUM METABOLISM DISORDER [None]
  - CELLULITIS [None]
  - CEREBROVASCULAR ACCIDENT [None]
  - CHEST PAIN [None]
  - CHEST WALL PAIN [None]
  - COAGULATION FACTOR VIII LEVEL INCREASED [None]
  - COUGH [None]
  - DECREASED APPETITE [None]
  - DIPLOPIA [None]
  - DISTURBANCE IN ATTENTION [None]
  - DRUG HYPERSENSITIVITY [None]
  - DYSPNOEA [None]
  - EMOTIONAL DISTRESS [None]
  - EYE PAIN [None]
  - FACE OEDEMA [None]
  - FIBROMYALGIA [None]
  - GALLBLADDER DISORDER [None]
  - GASTROOESOPHAGEAL REFLUX DISEASE [None]
  - GRANULOMA [None]
  - HAEMATOCHEZIA [None]
  - HEADACHE [None]
  - HIATUS HERNIA [None]
  - HIGH DENSITY LIPOPROTEIN DECREASED [None]
  - HYPERCALCAEMIA [None]
  - HYPOCALCAEMIA [None]
  - HYPOMAGNESAEMIA [None]
  - HYPOPARATHYROIDISM [None]
  - HYPOTHYROIDISM [None]
  - INCREASED APPETITE [None]
  - JOINT SWELLING [None]
  - LEUKOCYTOSIS [None]
  - LOW DENSITY LIPOPROTEIN INCREASED [None]
  - LUNG NEOPLASM [None]
  - MUCOSAL DRYNESS [None]
  - MUSCLE CRAMP [None]
  - MUSCLE TWITCHING [None]
  - MUSCULOSKELETAL STIFFNESS [None]
  - OEDEMA PERIPHERAL [None]
  - OESOPHAGEAL ACHALASIA [None]
  - OESOPHAGEAL STENOSIS [None]
  - PAIN IN EXTREMITY [None]
  - POLLAKIURIA [None]
  - PYREXIA [None]
  - RENAL FAILURE [None]
  - TACHYCARDIA [None]
  - TINNITUS [None]
  - TRANSIENT ISCHAEMIC ATTACK [None]
  - UPPER RESPIRATORY TRACT INFECTION [None]
  - VISION BLURRED [None]
  - VON WILLEBRAND'S FACTOR MULTIMERS ABNORMAL [None]
  - WEIGHT DECREASED [None]
  - WEIGHT INCREASED [None]
